FAERS Safety Report 4300093-6 (Version None)
Quarter: 2004Q1

REPORT INFORMATION
  Report Type: 
  Country: None (occurrence: None)
  Receive Date: 20040219
  Receipt Date: 20040219
  Transmission Date: 20041129
  Serious: Yes (Hospitalization)
  Sender: FDA-Public Use
  Company Number: None

PATIENT
  Age: 94 Year
  Sex: Male

DRUGS (5)
  1. CELECOXIB 100 MG CAP [Suspect]
     Dosage: 1 PO QD
     Route: 048
  2. ASPIRIN [Concomitant]
  3. RANITIDINE [Concomitant]
  4. TRAZODONE HCL [Concomitant]
  5. VERAPAMIL HCL [Concomitant]

REACTIONS (1)
  - HAEMATEMESIS [None]
